FAERS Safety Report 6942297-X (Version None)
Quarter: 2010Q3

REPORT INFORMATION
  Report Type: 
  Country: None (occurrence: None)
  Receive Date: 20100826
  Receipt Date: 20100818
  Transmission Date: 20110219
  Serious: Yes (Other)
  Sender: FDA-Public Use
  Company Number: US-BAYER-201036883GPV

PATIENT

DRUGS (3)
  1. SORAFENIB [Suspect]
     Indication: GLIOBLASTOMA MULTIFORME
     Dosage: TOTAL DAILY DOSE: 800 MG
     Route: 048
  2. TEMOZOLOMIDE [Suspect]
     Indication: GLIOBLASTOMA MULTIFORME
     Route: 048
  3. TEMOZOLOMIDE [Suspect]
     Dosage: ON DAYS 1-5 EVERY 28 DAYS
     Route: 048

REACTIONS (1)
  - PULMONARY EMBOLISM [None]
